FAERS Safety Report 10309067 (Version 2)
Quarter: 2021Q3

REPORT INFORMATION
  Report Type: Report from Study
  Country: ES (occurrence: ES)
  Receive Date: 20140716
  Receipt Date: 20210729
  Transmission Date: 20211014
  Serious: Yes (Other)
  Sender: FDA-Public Use
  Company Number: ES-TEVA-494881USA

PATIENT
  Age: 53 Year
  Sex: Female

DRUGS (2)
  1. BENDAMUSTINE HYDROCHLORIDE. [Suspect]
     Active Substance: BENDAMUSTINE HYDROCHLORIDE
     Indication: SPLENIC MARGINAL ZONE LYMPHOMA
     Dosage: 100?90 MG/M2 ON DAYS DAY 1?2 IN 28 DAY CYCLE (6 CYCLES)
     Route: 042
  2. RITUXIMAB. [Suspect]
     Active Substance: RITUXIMAB
     Indication: SPLENIC MARGINAL ZONE LYMPHOMA
     Dosage: (ON DAY 1 IN 28 DAY CYCLE, 6 CYCLES)
     Route: 065

REACTIONS (4)
  - CD4 lymphocytes decreased [Unknown]
  - Escherichia urinary tract infection [Unknown]
  - Pathogen resistance [Unknown]
  - Product use issue [Unknown]
